FAERS Safety Report 13006029 (Version 1)
Quarter: 2016Q4

REPORT INFORMATION
  Report Type: Spontaneous
  Country: US (occurrence: US)
  Receive Date: 20161206
  Receipt Date: 20161206
  Transmission Date: 20170207
  Serious: Yes (Other)
  Sender: FDA-Public Use
  Company Number: None

PATIENT
  Sex: Male
  Weight: 97.2 kg

DRUGS (2)
  1. ACTHAR [Suspect]
     Active Substance: CORTICOTROPIN
     Indication: RHEUMATOID ARTHRITIS
     Dosage: 80 UNITS/ML? OTHER FREQUENCY:2X WEEKLY;?
     Route: 058
  2. N/A [Suspect]
     Active Substance: UNSPECIFIED INGREDIENT

REACTIONS (1)
  - Increased tendency to bruise [None]
